FAERS Safety Report 21404954 (Version 3)
Quarter: 2022Q4

REPORT INFORMATION
  Report Type: Report from Study
  Country: US (occurrence: US)
  Receive Date: 20221003
  Receipt Date: 20221118
  Transmission Date: 20230112
  Serious: Yes (Other)
  Sender: FDA-Public Use
  Company Number: US-BEH-2022150220

PATIENT
  Age: 69 Year
  Sex: Male
  Weight: 93.63 kg

DRUGS (4)
  1. HIZENTRA [Suspect]
     Active Substance: HUMAN IMMUNOGLOBULIN G
     Indication: Primary immunodeficiency syndrome
     Dosage: UNK UNK, QW
     Route: 058
     Dates: start: 20220726, end: 202208
  2. HIZENTRA [Suspect]
     Active Substance: HUMAN IMMUNOGLOBULIN G
     Indication: Hypogammaglobulinaemia
     Dosage: UNK
     Route: 065
  3. HIZENTRA [Suspect]
     Active Substance: HUMAN IMMUNOGLOBULIN G
     Indication: Immunodeficiency common variable
     Dosage: 13 GRAM, QW
     Route: 058
     Dates: start: 20220719
  4. PRIVIGEN [Suspect]
     Active Substance: HUMAN IMMUNOGLOBULIN G
     Dosage: UNK
     Route: 042
     Dates: start: 20220916

REACTIONS (9)
  - Emergency care [Unknown]
  - Incorrect dose administered [Unknown]
  - Wrong schedule [Unknown]
  - Insurance issue [Unknown]
  - Bedridden [Unknown]
  - Dehydration [Unknown]
  - Therapeutic response unexpected [Unknown]
  - No adverse event [Recovering/Resolving]
  - Insurance issue [Recovering/Resolving]

NARRATIVE: CASE EVENT DATE: 20220901
